FAERS Safety Report 9769740 (Version 1)
Quarter: 2013Q4

REPORT INFORMATION
  Report Type: Spontaneous
  Country: US (occurrence: None)
  Receive Date: 20131216
  Receipt Date: 20131216
  Transmission Date: 20140711
  Serious: Yes (Other)
  Sender: FDA-Public Use
  Company Number: ADR-2013-02274

PATIENT
  Sex: Male

DRUGS (3)
  1. BACLOFEN [Suspect]
     Indication: PAIN
     Dosage: 19.49 U/DAY
  2. MORPHINE [Suspect]
     Dosage: 2.599 MG/DAY
  3. BUPIVACAINE [Suspect]

REACTIONS (6)
  - Activities of daily living impaired [None]
  - Mobility decreased [None]
  - Post procedural infection [None]
  - Pain [None]
  - Discomfort [None]
  - Device alarm issue [None]
